FAERS Safety Report 22825343 (Version 5)
Quarter: 2023Q4

REPORT INFORMATION
  Report Type: Spontaneous
  Country: FR (occurrence: FR)
  Receive Date: 20230816
  Receipt Date: 20231218
  Transmission Date: 20240110
  Serious: Yes (Hospitalization, Other)
  Sender: FDA-Public Use
  Company Number: FR-BAUSCHBL-2023BNL006334

PATIENT
  Age: 76 Year
  Sex: Male

DRUGS (10)
  1. BROMFENAC SODIUM [Suspect]
     Active Substance: BROMFENAC SODIUM
     Indication: Postoperative care
     Dosage: BOTH EYES, OCULAR ROUTE
     Route: 047
  2. BROMFENAC SODIUM [Suspect]
     Active Substance: BROMFENAC SODIUM
     Dosage: 1 DROP MORNING AND EVENING 20 DAYS A MONTH
     Route: 065
     Dates: end: 20230725
  3. AZARGA [Suspect]
     Active Substance: BRINZOLAMIDE\TIMOLOL MALEATE
     Indication: Glaucoma
     Dosage: 1 DROP IN BOTH EYES IN THE EVENING
     Route: 065
  4. .ALPHA.-TOCOPHEROL ACETATE, D- [Concomitant]
     Active Substance: .ALPHA.-TOCOPHEROL ACETATE, D-
     Indication: Vitamin E deficiency
     Dosage: 500
  5. EZETIMIBE\SIMVASTATIN [Concomitant]
     Active Substance: EZETIMIBE\SIMVASTATIN
     Indication: Hypercholesterolaemia
     Dosage: 10/20, 1 IN THE EVENING
     Route: 048
  6. CALCIDOSE [Concomitant]
     Indication: Osteoporosis
     Dosage: 500/400, 1 MORNING AND EVENING
     Route: 048
  7. PAROXETINE [Concomitant]
     Active Substance: PAROXETINE
     Indication: Depression
     Dosage: IN MORNING
     Route: 048
  8. METHOTREXATE SODIUM [Concomitant]
     Active Substance: METHOTREXATE SODIUM
     Indication: Psoriatic arthropathy
  9. FOLIC ACID [Concomitant]
     Active Substance: FOLIC ACID
     Indication: Product used for unknown indication
     Dosage: IN THE MORNING DUE TO METOJECT TREATMENT
     Route: 048
  10. TERIPARATIDE [Concomitant]
     Active Substance: TERIPARATIDE
     Indication: Osteoporosis

REACTIONS (3)
  - Dementia Alzheimer^s type [Unknown]
  - Eye irritation [Recovered/Resolved]
  - Off label use [Unknown]
